FAERS Safety Report 21147653 (Version 1)
Quarter: 2022Q3

REPORT INFORMATION
  Report Type: Report from Study
  Country: CO (occurrence: CO)
  Receive Date: 20220729
  Receipt Date: 20220729
  Transmission Date: 20221027
  Serious: Yes (Hospitalization, Other)
  Sender: FDA-Public Use
  Company Number: CO-ASTELLAS-2022US026804

PATIENT
  Age: 40 Year
  Sex: Female

DRUGS (1)
  1. TACROLIMUS [Suspect]
     Active Substance: TACROLIMUS
     Indication: Renal transplant
     Route: 048
     Dates: start: 20220316

REACTIONS (3)
  - Secondary immunodeficiency [Recovered/Resolved]
  - Haemoglobin decreased [Recovered/Resolved]
  - Vaginal haemorrhage [Not Recovered/Not Resolved]

NARRATIVE: CASE EVENT DATE: 20220503
